FAERS Safety Report 7277774-8 (Version None)
Quarter: 2011Q1

REPORT INFORMATION
  Report Type: 
  Country: None (occurrence: None)
  Receive Date: 20110207
  Receipt Date: 20100715
  Transmission Date: 20110831
  Serious: No
  Sender: FDA-Public Use
  Company Number: A0870649A

PATIENT
  Age: 45 Year
  Sex: Female

DRUGS (2)
  1. OLUX E FOAM (EMULSION AEROSOL FOAM) [Suspect]
     Indication: PSORIASIS
     Dosage: 1APP TWICE PER DAY
     Route: 061
     Dates: start: 20090701, end: 20100101
  2. CLOBETASOL [Concomitant]

REACTIONS (2)
  - HAIR DISORDER [None]
  - DRUG INEFFECTIVE [None]
